FAERS Safety Report 9260521 (Version 2)
Quarter: 2013Q3

REPORT INFORMATION
  Report Type: Spontaneous
  Country: GB (occurrence: GB)
  Receive Date: 20130429
  Receipt Date: 20130808
  Transmission Date: 20140515
  Serious: Yes (Death)
  Sender: FDA-Public Use
  Company Number: GB-NOVOPROD-371566

PATIENT
  Age: 75 Year
  Sex: Male
  Weight: 87 kg

DRUGS (11)
  1. NOVOMIX 30 FLEXPEN [Suspect]
     Indication: TYPE 2 DIABETES MELLITUS
     Dosage: 16+18, QD
     Route: 065
  2. DIGOXIN [Concomitant]
     Dosage: 125 ?G, QD
     Dates: start: 20130223
  3. DIGOXIN [Concomitant]
     Dosage: 250 ?G, UNK
  4. DILTIAZEM [Concomitant]
     Dosage: 360 MG, UNK
  5. PEPPERMINT OIL [Concomitant]
     Dosage: 0.2 ML, TID AS NEEDED.
     Route: 048
  6. MIRTAZAPINE [Concomitant]
     Dosage: 15 MG, QD
  7. FLUCLOXACILLIN [Concomitant]
     Dosage: 500 MG, QID
  8. BUSCOPAN [Concomitant]
     Dosage: 10 MG, TID
  9. METRONIDAZOLE [Concomitant]
     Dosage: 400 MG, TID
  10. CEFALEXIN [Concomitant]
     Dosage: 250 MG, QID
  11. ASPIRIN [Concomitant]

REACTIONS (2)
  - Lower respiratory tract infection [Fatal]
  - Blood glucose increased [Unknown]
